FAERS Safety Report 9268358 (Version 1)
Quarter: 2013Q2

REPORT INFORMATION
  Report Type: Spontaneous
  Country: US (occurrence: US)
  Receive Date: 20130502
  Receipt Date: 20130502
  Transmission Date: 20140414
  Serious: Yes (Hospitalization, Other)
  Sender: FDA-Public Use
  Company Number: US-ALEXION PHARMACEUTICALS INC.-A201202068

PATIENT
  Age: 3 Year
  Sex: Female
  Weight: 14.7 kg

DRUGS (23)
  1. SOLIRIS 300MG [Suspect]
     Indication: HAEMOLYTIC URAEMIC SYNDROME
     Dosage: 600 MG, SINGLE
     Route: 042
     Dates: start: 20120402, end: 20120402
  2. SOLIRIS 300MG [Suspect]
     Indication: PROPHYLAXIS AGAINST TRANSPLANT REJECTION
     Dosage: 300 MG, Q2W
     Route: 042
     Dates: start: 20120409, end: 20121023
  3. SOLIRIS 300MG [Suspect]
     Dosage: 300 MG, SINGLE
     Route: 042
     Dates: start: 20121025, end: 20121025
  4. SOLIRIS 300MG [Suspect]
     Dosage: 600 MG, SINGLE
     Route: 042
     Dates: start: 20121031, end: 20121031
  5. SOLIRIS 300MG [Suspect]
     Dosage: 600 MG, SINGLE
     Route: 042
     Dates: start: 20121108, end: 20121108
  6. PREVACID [Concomitant]
     Indication: PROPHYLAXIS AGAINST GASTROINTESTINAL ULCER
     Dosage: 50 MG, QD
     Route: 051
     Dates: start: 20121023
  7. THYMOGLOBULINE [Concomitant]
     Dosage: UNK, AS INDICATED
     Route: 042
     Dates: start: 20121023, end: 20121025
  8. PROGRAF [Concomitant]
     Indication: PROPHYLAXIS AGAINST TRANSPLANT REJECTION
     Dosage: 2 MG, BID
     Route: 051
     Dates: start: 20121023
  9. CELLCEPT [Concomitant]
     Indication: PROPHYLAXIS AGAINST TRANSPLANT REJECTION
     Dosage: 170 MG, BID
     Route: 051
     Dates: start: 20121023
  10. PREDNISOLONE [Concomitant]
     Indication: PROPHYLAXIS AGAINST TRANSPLANT REJECTION
     Dosage: 7.5 MG, QD
     Route: 051
     Dates: start: 20121023
  11. BACTRIM [Concomitant]
     Indication: ANTIFUNGAL PROPHYLAXIS
     Dosage: 9 ML, BID M/W/F
     Route: 051
  12. VALCYTE [Concomitant]
     Indication: ANTIVIRAL PROPHYLAXIS
     Dosage: 400 MG, QD
     Route: 051
  13. NYSTATIN [Concomitant]
     Indication: PROPHYLAXIS
     Dosage: 3 ML, TID SWISH AND SWALLOW
     Route: 048
  14. AMLODIPINE [Concomitant]
     Indication: HYPERTENSION
     Dosage: 5 MG, BID
     Route: 051
  15. ATENOLOL [Concomitant]
     Indication: HYPERTENSION
     Dosage: 20 MG, QD
     Route: 051
  16. ENALAPRIL [Concomitant]
     Indication: HYPERTENSION
     Dosage: 1 MG, BID
     Route: 051
  17. CLONIDINE [Concomitant]
     Indication: HYPERTENSION
     Dosage: 0.5 MG, BID
     Route: 051
  18. SENSIPAR [Concomitant]
     Indication: HYPERPARATHYROIDISM SECONDARY
     Dosage: 30 MG, QD
     Route: 051
  19. MAGNESIUM GLUCONATE [Concomitant]
     Indication: BLOOD MAGNESIUM DECREASED
     Dosage: 54 MG, TID
     Route: 051
  20. NIFEDIPINE [Concomitant]
     Indication: HYPERTENSION
     Dosage: 3 MG, PRN
     Route: 060
  21. LORTAB [Concomitant]
     Indication: PAIN
     Dosage: 2 ML, QID
     Route: 051
  22. TYLENOL [Concomitant]
     Indication: PAIN
     Dosage: 200 MG, TID
     Route: 051
  23. CYTOGAM [Concomitant]
     Indication: ANTIVIRAL PROPHYLAXIS
     Dosage: 2.5 G Q3W
     Route: 042

REACTIONS (2)
  - Elective surgery [Recovering/Resolving]
  - Haemolysis [Recovered/Resolved]
